APPROVED DRUG PRODUCT: TOLBUTAMIDE
Active Ingredient: TOLBUTAMIDE
Strength: 500MG
Dosage Form/Route: TABLET;ORAL
Application: A088893 | Product #001
Applicant: SUPERPHARM CORP
Approved: Nov 19, 1984 | RLD: No | RS: No | Type: DISCN